FAERS Safety Report 9717324 (Version 2)
Quarter: 2013Q4

REPORT INFORMATION
  Report Type: Other
  Country: US (occurrence: US)
  Receive Date: 20131127
  Receipt Date: 20131127
  Transmission Date: 20140711
  Serious: Yes (Other)
  Sender: FDA-Public Use
  Company Number: US-SHIRE-ALL1-2013-06294

PATIENT
  Sex: Female

DRUGS (1)
  1. VPRIV [Suspect]
     Indication: GAUCHER^S DISEASE
     Dosage: 5200 IU (13 VIALS), OTHER (BI-MONTHLY)
     Route: 041
     Dates: start: 20100712

REACTIONS (3)
  - Breast cancer [Not Recovered/Not Resolved]
  - Musculoskeletal pain [Unknown]
  - Bursitis [Unknown]
